FAERS Safety Report 17308313 (Version 3)
Quarter: 2021Q1

REPORT INFORMATION
  Report Type: Report from Study
  Country: US (occurrence: US)
  Receive Date: 20200123
  Receipt Date: 20210308
  Transmission Date: 20210419
  Serious: Yes (Other)
  Sender: FDA-Public Use
  Company Number: US-GLAXOSMITHKLINE-US2020TSO012142

PATIENT
  Age: 59 Year
  Sex: Female
  Weight: 49.93 kg

DRUGS (2)
  1. NIRAPARIB [Suspect]
     Active Substance: NIRAPARIB
     Indication: OVARIAN CANCER
     Dosage: 100 MG, QD
     Route: 048
     Dates: start: 20191212
  2. NIRAPARIB [Suspect]
     Active Substance: NIRAPARIB
     Dosage: 100 MG, QD
     Route: 048

REACTIONS (7)
  - Neuropathy peripheral [Unknown]
  - Hypoacusis [Unknown]
  - Product dose omission issue [Not Recovered/Not Resolved]
  - Computerised tomogram abnormal [Unknown]
  - Malaise [Unknown]
  - Vertigo [Not Recovered/Not Resolved]
  - Carbohydrate antigen 125 increased [Unknown]

NARRATIVE: CASE EVENT DATE: 202012
